FAERS Safety Report 17983209 (Version 48)
Quarter: 2025Q4

REPORT INFORMATION
  Report Type: Spontaneous
  Country: IL (occurrence: IL)
  Receive Date: 20200706
  Receipt Date: 20251023
  Transmission Date: 20260117
  Serious: Yes (Other)
  Sender: PFIZER
  Company Number: IL-PFIZER INC-2017029199

PATIENT
  Age: 71 Year
  Sex: Male

DRUGS (27)
  1. ELELYSO [Suspect]
     Active Substance: TALIGLUCERASE ALFA
     Indication: Gaucher^s disease
     Dosage: UNK
     Dates: start: 20160301
  2. ELELYSO [Suspect]
     Active Substance: TALIGLUCERASE ALFA
     Dosage: 2200 IU TWICE A MONTH
     Route: 042
  3. ELELYSO [Suspect]
     Active Substance: TALIGLUCERASE ALFA
     Dosage: 2200 IU TWICE A MONTH
     Route: 042
     Dates: start: 20210308
  4. ELELYSO [Suspect]
     Active Substance: TALIGLUCERASE ALFA
     Dosage: 3200 IU/16 VIALS E.O.W/2M
     Route: 042
     Dates: start: 20221117
  5. ELELYSO [Suspect]
     Active Substance: TALIGLUCERASE ALFA
     Dosage: 3200 IU TWICE A MONTH
     Route: 042
  6. ELELYSO [Suspect]
     Active Substance: TALIGLUCERASE ALFA
     Dosage: 3200 IU/16 VIALS E.O.W/2M
     Route: 042
     Dates: start: 20230302, end: 20230302
  7. ELELYSO [Suspect]
     Active Substance: TALIGLUCERASE ALFA
     Dosage: 3200 IU/16 VIALS E.O.W/2 M
     Route: 042
     Dates: start: 20230322, end: 20230322
  8. ELELYSO [Suspect]
     Active Substance: TALIGLUCERASE ALFA
     Dosage: 3200 IU/16 VIALS E.O.W/2M
     Route: 042
     Dates: start: 20230502, end: 20230502
  9. ELELYSO [Suspect]
     Active Substance: TALIGLUCERASE ALFA
     Dosage: 3200 IU/16 VIALS E.O.W/2M
     Route: 042
     Dates: start: 20230523, end: 20230523
  10. ELELYSO [Suspect]
     Active Substance: TALIGLUCERASE ALFA
     Dosage: 3200 IU/16 VIALS E.O.W/2M
     Route: 042
     Dates: start: 20230817, end: 20230817
  11. ELELYSO [Suspect]
     Active Substance: TALIGLUCERASE ALFA
     Dosage: 3200 IU/16 VIALS E.O.W/2M
     Route: 042
     Dates: start: 20230905
  12. ELELYSO [Suspect]
     Active Substance: TALIGLUCERASE ALFA
     Dosage: 3200 IU/16 VIALS E.O.W/2M
     Route: 042
     Dates: start: 20230919
  13. ELELYSO [Suspect]
     Active Substance: TALIGLUCERASE ALFA
     Dosage: 3200 IU/16 VIALS E.O.W/2M
     Route: 042
     Dates: start: 20231018
  14. ELELYSO [Suspect]
     Active Substance: TALIGLUCERASE ALFA
     Dosage: 3200 IU TWICE A MONTH
     Route: 042
     Dates: start: 20231018
  15. ELELYSO [Suspect]
     Active Substance: TALIGLUCERASE ALFA
     Dosage: 3200 IU TWICE A MONTH
     Route: 042
     Dates: start: 20240521, end: 20240521
  16. ELELYSO [Suspect]
     Active Substance: TALIGLUCERASE ALFA
     Dosage: 3200 IU TWICE A MONTH
     Route: 042
     Dates: start: 20240604, end: 20240604
  17. ELELYSO [Suspect]
     Active Substance: TALIGLUCERASE ALFA
     Dosage: 3200 IU TWICE A MONTH
     Route: 042
     Dates: start: 20240627, end: 20240627
  18. ELELYSO [Suspect]
     Active Substance: TALIGLUCERASE ALFA
     Dosage: 3200 IU TWICE A MONTH
     Route: 042
     Dates: start: 20240806, end: 20240806
  19. ELELYSO [Suspect]
     Active Substance: TALIGLUCERASE ALFA
     Dosage: 3200 IU TWICE A MONTH
     Route: 042
     Dates: start: 20240829
  20. ELELYSO [Suspect]
     Active Substance: TALIGLUCERASE ALFA
     Dosage: 3200 IU TWICE A MONTH
     Route: 042
     Dates: start: 20241008
  21. ELELYSO [Suspect]
     Active Substance: TALIGLUCERASE ALFA
     Dosage: 3200 IU TWICE A MONTH
     Route: 042
     Dates: start: 20241029
  22. ELELYSO [Suspect]
     Active Substance: TALIGLUCERASE ALFA
     Dosage: 3200 IU TWICE A MONTH
     Route: 042
     Dates: start: 20241218
  23. ELELYSO [Suspect]
     Active Substance: TALIGLUCERASE ALFA
     Dosage: 3200 IU TWICE A MONTH
     Route: 042
     Dates: start: 20250423
  24. ELELYSO [Suspect]
     Active Substance: TALIGLUCERASE ALFA
     Dosage: 3200 IU TWICE A MONTH
     Route: 042
     Dates: start: 20250515
  25. ELELYSO [Suspect]
     Active Substance: TALIGLUCERASE ALFA
     Dosage: 3400/3600 IU TWICE A MONTH
     Route: 042
     Dates: start: 20250902, end: 20250902
  26. ELELYSO [Suspect]
     Active Substance: TALIGLUCERASE ALFA
     Dosage: UNK
     Dates: start: 20250925
  27. ELELYSO [Suspect]
     Active Substance: TALIGLUCERASE ALFA
     Dosage: UNK
     Dates: start: 20251021, end: 20251021

REACTIONS (11)
  - Cataract [Unknown]
  - Lymphoma [Unknown]
  - Pyrexia [Not Recovered/Not Resolved]
  - Asthenia [Unknown]
  - Full blood count decreased [Unknown]
  - Nasopharyngitis [Unknown]
  - Weight increased [Unknown]
  - Off label use [Unknown]
  - Incorrect dose administered [Unknown]
  - Product dose omission issue [Unknown]
  - Drug monitoring procedure not performed [Unknown]
